FAERS Safety Report 4298455-9 (Version None)
Quarter: 2004Q1

REPORT INFORMATION
  Report Type: 
  Country: None (occurrence: None)
  Receive Date: 20040218
  Receipt Date: 20030730
  Transmission Date: 20041129
  Serious: Yes (Other)
  Sender: FDA-Public Use
  Company Number: US-BRISTOL-MYERS SQUIBB COMPANY-12351037

PATIENT
  Age: 37 Year
  Sex: Female
  Weight: 105 kg

DRUGS (7)
  1. STADOL [Suspect]
     Indication: MIGRAINE
     Route: 045
  2. STADOL [Suspect]
     Indication: HEADACHE
     Route: 045
  3. DEMEROL [Concomitant]
     Indication: PAIN
  4. LORTAB [Concomitant]
     Indication: PAIN
  5. PHENERGAN [Concomitant]
     Route: 030
  6. VIOXX [Concomitant]
  7. IMITREX [Concomitant]

REACTIONS (1)
  - DEPENDENCE [None]
